FAERS Safety Report 5475617-6 (Version None)
Quarter: 2007Q4

REPORT INFORMATION
  Report Type: 
  Country: None (occurrence: None)
  Receive Date: 20071003
  Receipt Date: 20070730
  Transmission Date: 20080405
  Serious: No
  Sender: FDA-Public Use
  Company Number: US-KINGPHARMUSA00001-K200700957

PATIENT

DRUGS (5)
  1. SONATA [Suspect]
     Indication: INSOMNIA
     Dosage: 10 MG, QHS
     Route: 048
     Dates: start: 20070722, end: 20070723
  2. PREDNISONE [Concomitant]
     Indication: INFLAMMATION
     Dosage: 5 MG, QD
  3. REQUIP [Concomitant]
     Indication: RESTLESS LEGS SYNDROME
     Dosage: 2 MG, BID
  4. LEVOTHYROXINE SODIUM [Concomitant]
     Dosage: 88 MCG, QD
  5. ACIPHEX [Concomitant]
     Dosage: 20 MG, 30 MIN BEFORE MEALS

REACTIONS (2)
  - DRUG INEFFECTIVE [None]
  - INSOMNIA [None]
